FAERS Safety Report 7564795-0 (Version None)
Quarter: 2011Q2

REPORT INFORMATION
  Report Type: 
  Country: None (occurrence: None)
  Receive Date: 20110622
  Receipt Date: 20101129
  Transmission Date: 20111010
  Serious: Yes (Death)
  Sender: FDA-Public Use
  Company Number: US-MYLANLABS-2010S1021802

PATIENT
  Age: 51 Year
  Sex: Male

DRUGS (8)
  1. QUINAPRIL HCL [Concomitant]
  2. METFORMIN HCL [Concomitant]
  3. BENZTROPINE MESYLATE [Concomitant]
  4. RISPERIDONE [Concomitant]
  5. CLOZAPINE [Suspect]
     Route: 048
     Dates: start: 20100125
  6. DOXAZOSIN MESYLATE [Concomitant]
  7. KLOR-CON [Concomitant]
  8. METOLAZONE [Concomitant]

REACTIONS (1)
  - DEATH [None]
